FAERS Safety Report 8002794-5 (Version None)
Quarter: 2011Q4

REPORT INFORMATION
  Report Type: 
  Country: None (occurrence: None)
  Receive Date: 20111222
  Receipt Date: 20111215
  Transmission Date: 20120403
  Serious: Yes (Hospitalization, Other)
  Sender: FDA-Public Use
  Company Number: US-VERTEX PHARMACEUTICALS INC.-AE-2011-002811

PATIENT
  Sex: Male
  Weight: 106.69 kg

DRUGS (6)
  1. INCIVEK [Suspect]
     Indication: HEPATITIS C
     Route: 048
     Dates: start: 20111003, end: 20111126
  2. ALBUTEROL [Concomitant]
  3. GLYBURIDE [Concomitant]
     Route: 048
  4. RIBAVIRIN [Concomitant]
     Indication: HEPATITIS C
     Route: 048
     Dates: start: 20111003
  5. INTERFERON [Concomitant]
     Indication: HEPATITIS C
     Route: 058
     Dates: start: 20111003
  6. LISINOPRIL [Concomitant]
     Route: 048

REACTIONS (5)
  - CHRONIC OBSTRUCTIVE PULMONARY DISEASE [None]
  - PANCYTOPENIA [None]
  - DEPRESSION [None]
  - MOOD SWINGS [None]
  - ODYNOPHAGIA [None]
